FAERS Safety Report 17842365 (Version 1)
Quarter: 2020Q2

REPORT INFORMATION
  Report Type: Report from Study
  Country: GB (occurrence: GB)
  Receive Date: 20200529
  Receipt Date: 20200529
  Transmission Date: 20200714
  Serious: Yes (Other)
  Sender: FDA-Public Use
  Company Number: NVSC2020GB147481

PATIENT
  Sex: Female

DRUGS (1)
  1. ERELZI [Suspect]
     Active Substance: ETANERCEPT-SZZS
     Indication: PSORIATIC ARTHROPATHY
     Dosage: 50 MG, QW
     Route: 058

REACTIONS (5)
  - Insomnia [Unknown]
  - Gastrointestinal carcinoma [Unknown]
  - Musculoskeletal pain [Recovering/Resolving]
  - Crohn^s disease [Unknown]
  - Neck pain [Recovering/Resolving]
